FAERS Safety Report 4469462-8 (Version None)
Quarter: 2004Q4

REPORT INFORMATION
  Report Type: 
  Country: None (occurrence: None)
  Receive Date: 20041005
  Receipt Date: 20040921
  Transmission Date: 20050328
  Serious: Yes (Hospitalization)
  Sender: FDA-Public Use
  Company Number: ZANA001350

PATIENT
  Age: 70 Year
  Sex: Female

DRUGS (15)
  1. SIRDALUD (TIZANIDINE HYDROCHLORIDE) [Suspect]
     Indication: DRUG USE FOR UNKNOWN INDICATION
     Dosage: 4 MG DAILY ORAL
     Route: 048
     Dates: end: 20040810
  2. INDERAL [Suspect]
     Indication: DRUG USE FOR UNKNOWN INDICATION
     Dosage: 40 MG DAILY ORAL
     Route: 048
     Dates: start: 20040804, end: 20040810
  3. CIPROFLOXACIN [Suspect]
     Indication: URINARY TRACT INFECTION
     Dosage: 1000 MG DAILY
     Dates: start: 20040809, end: 20040812
  4. ASPIRIN [Concomitant]
  5. COAPROVEL (IRBESARTAN) [Concomitant]
  6. SIMVASTATIN [Concomitant]
  7. OXAZEPAM [Concomitant]
  8. PHLEBODRIL N (RUSCUS ACULEATUS MELILOTUS OFFICINALIS) [Concomitant]
  9. TRAMADOL HCL [Concomitant]
  10. QUILONORM (LITHIUM ACETATE) [Concomitant]
  11. SURMONTIL [Concomitant]
  12. NEURONTIN [Concomitant]
  13. CELEBREX [Concomitant]
  14. CIPRALEX (ESCITALOPRAM) [Concomitant]
  15. LITHIUM CARBONATE [Concomitant]

REACTIONS (22)
  - BLOOD CREATININE INCREASED [None]
  - DELIRIUM [None]
  - ELECTROCARDIOGRAM QRS COMPLEX PROLONGED [None]
  - ELECTROCARDIOGRAM QT PROLONGED [None]
  - ELECTROCARDIOGRAM REPOLARISATION ABNORMALITY [None]
  - FALL [None]
  - GENERAL PHYSICAL HEALTH DETERIORATION [None]
  - HAEMOGLOBIN DECREASED [None]
  - HEADACHE [None]
  - HYPOTENSION [None]
  - LOSS OF CONSCIOUSNESS [None]
  - MYOCLONUS [None]
  - PERSONALITY CHANGE [None]
  - POLYDIPSIA [None]
  - PULSE ABSENT [None]
  - PYREXIA [None]
  - SINUS ARREST [None]
  - SINUS BRADYCARDIA [None]
  - SOMNOLENCE [None]
  - THERAPEUTIC AGENT TOXICITY [None]
  - TREMOR [None]
  - URINE ABNORMALITY [None]
